FAERS Safety Report 5529582-3 (Version None)
Quarter: 2007Q4

REPORT INFORMATION
  Report Type: 
  Country: None (occurrence: None)
  Receive Date: 20071129
  Receipt Date: 20070905
  Transmission Date: 20080405
  Serious: Yes (Hospitalization)
  Sender: FDA-Public Use
  Company Number: JP-ASTRAZENECA-2007AP05648

PATIENT
  Age: 10071 Day
  Sex: Female
  Weight: 54.8 kg

DRUGS (16)
  1. MARCAINE HYDROCHLORIDE PRESERVATIVE FREE [Suspect]
     Indication: SPINAL ANAESTHESIA
     Route: 037
     Dates: start: 20070725, end: 20070725
  2. XYLOCAINE [Suspect]
     Indication: EPIDURAL ANAESTHESIA
     Dosage: TEST DOSE
     Route: 008
     Dates: start: 20070725, end: 20070725
  3. XYLOCAINE [Suspect]
     Route: 008
     Dates: start: 20070725, end: 20070725
  4. NAROPIN [Suspect]
     Indication: EPIDURAL ANAESTHESIA
     Route: 008
     Dates: start: 20070725, end: 20070725
  5. MARCAINE [Suspect]
     Dosage: 3 SEPERATE DOSES (40 MG, 40 MG, 20 MG)
     Route: 008
     Dates: start: 20070725, end: 20070725
  6. MARCAINE [Suspect]
     Route: 008
     Dates: start: 20070725, end: 20070725
  7. MARCAINE [Suspect]
     Route: 008
     Dates: start: 20070726, end: 20070726
  8. MARCAINE [Suspect]
     Dosage: GIVEN AS 6 SEPERATE DOSES
     Route: 008
     Dates: start: 20070726, end: 20070726
  9. MARCAINE [Suspect]
     Dosage: 2 SEPERATE DOSES OF 30 MG
     Route: 008
     Dates: start: 20070727, end: 20070727
  10. MARCAINE [Suspect]
     Route: 008
     Dates: start: 20070728, end: 20070728
  11. ATROPINE SULFATE [Concomitant]
     Indication: PREMEDICATION
     Route: 030
     Dates: start: 20070725, end: 20070725
  12. PRIMPERAN INJ [Concomitant]
     Indication: ANAESTHETIC PREMEDICATION
     Route: 042
     Dates: start: 20070725, end: 20070725
  13. FAMOTIDINE [Concomitant]
     Indication: PREMEDICATION
     Route: 048
     Dates: start: 20070725, end: 20070725
  14. LEPETAN [Concomitant]
     Indication: PROCEDURAL PAIN
     Route: 008
     Dates: start: 20070725, end: 20070726
  15. RECTOS [Concomitant]
     Dates: start: 20070725, end: 20070726
  16. EFUNIKOL [Concomitant]
     Indication: ANTIBIOTIC PROPHYLAXIS
     Dates: start: 20070725, end: 20070726

REACTIONS (1)
  - DECUBITUS ULCER [None]
